FAERS Safety Report 22372690 (Version 1)
Quarter: 2023Q2

REPORT INFORMATION
  Report Type: Spontaneous
  Country: CN (occurrence: CN)
  Receive Date: 20230526
  Receipt Date: 20230526
  Transmission Date: 20230721
  Serious: Yes (Hospitalization)
  Sender: FDA-Public Use
  Company Number: CN-Eisai Medical Research-EC-2023-140723

PATIENT
  Age: 69 Year
  Sex: Male
  Weight: 60 kg

DRUGS (4)
  1. LENVIMA [Suspect]
     Active Substance: LENVATINIB
     Indication: Hepatic cancer metastatic
     Route: 048
     Dates: start: 20211125, end: 20220719
  2. LENVIMA [Suspect]
     Active Substance: LENVATINIB
     Indication: Gallbladder cancer
  3. SINTILIMAB [Suspect]
     Active Substance: SINTILIMAB
     Indication: Hepatic cancer metastatic
     Route: 041
     Dates: start: 20211125, end: 20220719
  4. SINTILIMAB [Suspect]
     Active Substance: SINTILIMAB
     Indication: Gallbladder cancer

REACTIONS (2)
  - Diabetic ketoacidosis [Recovered/Resolved with Sequelae]
  - Acute myocardial infarction [Recovered/Resolved with Sequelae]

NARRATIVE: CASE EVENT DATE: 20220816
